FAERS Safety Report 20334920 (Version 22)
Quarter: 2022Q3

REPORT INFORMATION
  Report Type: Report from Study
  Country: BR (occurrence: BR)
  Receive Date: 20220114
  Receipt Date: 20220826
  Transmission Date: 20221027
  Serious: Yes (Other)
  Sender: FDA-Public Use
  Company Number: BR-NOVARTISPH-NVSC2021BR302115

PATIENT
  Sex: Female

DRUGS (32)
  1. KISQALI [Suspect]
     Active Substance: RIBOCICLIB
     Indication: Breast cancer
     Dosage: UNK
     Route: 065
     Dates: start: 20210104
  2. KISQALI [Suspect]
     Active Substance: RIBOCICLIB
     Dosage: UNK
     Route: 065
  3. KISQALI [Suspect]
     Active Substance: RIBOCICLIB
     Dosage: UNK
     Route: 065
     Dates: start: 20210104, end: 20220416
  4. KISQALI [Suspect]
     Active Substance: RIBOCICLIB
     Dosage: 600 MG
     Route: 065
     Dates: start: 202101
  5. KISQALI [Suspect]
     Active Substance: RIBOCICLIB
     Dosage: UNK
     Route: 065
     Dates: start: 20220219
  6. KISQALI [Suspect]
     Active Substance: RIBOCICLIB
     Dosage: 600 MG
     Route: 065
     Dates: start: 202101
  7. KISQALI [Suspect]
     Active Substance: RIBOCICLIB
     Dosage: 3 DOSAGE FORM, QD
     Route: 065
     Dates: start: 202101
  8. KISQALI [Suspect]
     Active Substance: RIBOCICLIB
     Dosage: 3 DOSAGE FORM, QD (STOPPED IN BEGINNING OF 2022)
     Route: 048
  9. KISQALI [Suspect]
     Active Substance: RIBOCICLIB
     Dosage: UNK
     Route: 065
  10. KISQALI [Suspect]
     Active Substance: RIBOCICLIB
     Dosage: UNK
     Route: 065
     Dates: end: 202203
  11. ZOMETA [Suspect]
     Active Substance: ZOLEDRONIC ACID
     Indication: Breast cancer
     Dosage: UNK
     Route: 065
     Dates: start: 2019
  12. ZOMETA [Suspect]
     Active Substance: ZOLEDRONIC ACID
     Indication: Metastases to bone
     Dosage: UNK
     Route: 065
  13. ZOMETA [Suspect]
     Active Substance: ZOLEDRONIC ACID
     Dosage: 600 MG (EVERY 3 MONTHS)
     Route: 065
     Dates: start: 201901
  14. ZOMETA [Suspect]
     Active Substance: ZOLEDRONIC ACID
     Dosage: UNK
     Route: 065
     Dates: start: 202001
  15. ANASTROZOLE [Suspect]
     Active Substance: ANASTROZOLE
     Indication: Breast cancer
     Dosage: UNK
     Route: 065
  16. TAMOXIFEN [Suspect]
     Active Substance: TAMOXIFEN
     Indication: Breast cancer
     Dosage: UNK
     Route: 065
  17. LETROZOLE [Suspect]
     Active Substance: LETROZOLE
     Indication: Product used for unknown indication
     Dosage: UNK
     Route: 065
  18. ONDANSETRON [Suspect]
     Active Substance: ONDANSETRON
     Indication: Product used for unknown indication
     Dosage: UNK
     Route: 065
  19. PANTOPRAZOLE [Suspect]
     Active Substance: PANTOPRAZOLE
     Indication: Product used for unknown indication
     Route: 065
  20. FULVESTRANT [Suspect]
     Active Substance: FULVESTRANT
     Indication: Hormone therapy
     Dosage: UNK
     Route: 065
     Dates: start: 2019
  21. FULVESTRANT [Suspect]
     Active Substance: FULVESTRANT
     Dosage: UNK
     Route: 065
  22. FULVESTRANT [Suspect]
     Active Substance: FULVESTRANT
     Dosage: UNK
     Route: 065
     Dates: start: 202101
  23. FULVESTRANT [Suspect]
     Active Substance: FULVESTRANT
     Dosage: UNK
     Route: 065
  24. PIQRAY [Suspect]
     Active Substance: ALPELISIB
     Indication: Product used for unknown indication
     Dosage: UNK
     Route: 065
  25. LORATADINE [Concomitant]
     Active Substance: LORATADINE
     Indication: Antiallergic therapy
     Dosage: UNK (STOPPED ABOUT 3 MONTHS AGO)
     Route: 065
  26. LORATADINE [Concomitant]
     Active Substance: LORATADINE
     Indication: Sinusitis
     Dosage: UNK UNK, QD
     Route: 065
  27. LORATADINE [Concomitant]
     Active Substance: LORATADINE
     Indication: Rhinitis
  28. EXEMESTANE [Concomitant]
     Active Substance: EXEMESTANE
     Indication: Product used for unknown indication
     Route: 065
  29. CLONAZEPAM [Concomitant]
     Active Substance: CLONAZEPAM
     Indication: Product used for unknown indication
     Dosage: UNK
     Route: 065
  30. CAPECITABINE [Concomitant]
     Active Substance: CAPECITABINE
     Indication: Product used for unknown indication
     Dosage: UNK
     Route: 065
  31. GEMCITABINE [Concomitant]
     Active Substance: GEMCITABINE
     Indication: Product used for unknown indication
     Dosage: UNK
     Route: 065
  32. VITAMIN D [Concomitant]
     Active Substance: VITAMIN D NOS
     Indication: Product used for unknown indication
     Route: 065

REACTIONS (133)
  - Vulvovaginal injury [Unknown]
  - Spinal fracture [Recovering/Resolving]
  - Vein rupture [Unknown]
  - Metastases to bone [Unknown]
  - Metastases to spine [Unknown]
  - Metastases to liver [Not Recovered/Not Resolved]
  - Metastasis [Unknown]
  - Haemorrhage [Unknown]
  - Hydronephrosis [Unknown]
  - Urinary retention [Unknown]
  - Seizure [Unknown]
  - Breast cancer [Not Recovered/Not Resolved]
  - Malignant neoplasm progression [Not Recovered/Not Resolved]
  - Nail cuticle fissure [Not Recovered/Not Resolved]
  - Epistaxis [Recovered/Resolved]
  - Dry skin [Not Recovered/Not Resolved]
  - Dry mouth [Not Recovered/Not Resolved]
  - Constipation [Not Recovered/Not Resolved]
  - Vulvovaginal dryness [Not Recovered/Not Resolved]
  - Drug ineffective [Not Recovered/Not Resolved]
  - Petechiae [Unknown]
  - Skin tightness [Unknown]
  - Visual impairment [Not Recovered/Not Resolved]
  - Skin fissures [Unknown]
  - Skin atrophy [Unknown]
  - Dry throat [Unknown]
  - Nasal mucosal disorder [Unknown]
  - Nasal discomfort [Not Recovered/Not Resolved]
  - Secretion discharge [Unknown]
  - Insomnia [Unknown]
  - Throat irritation [Unknown]
  - Hair texture abnormal [Unknown]
  - Skin exfoliation [Unknown]
  - Breast disorder [Unknown]
  - Tumour marker increased [Not Recovered/Not Resolved]
  - Calcification metastatic [Unknown]
  - Weight increased [Recovering/Resolving]
  - Flatulence [Unknown]
  - Reflux gastritis [Unknown]
  - Hiatus hernia [Unknown]
  - Gastritis [Unknown]
  - Muscle spasms [Recovered/Resolved]
  - Vitamin B12 deficiency [Unknown]
  - Feeding disorder [Recovered/Resolved]
  - Balance disorder [Unknown]
  - Head injury [Recovered/Resolved]
  - Fall [Unknown]
  - Dermal absorption impaired [Unknown]
  - Thermal burn [Unknown]
  - Nasal congestion [Unknown]
  - Eye swelling [Unknown]
  - Phlebitis [Unknown]
  - Rhinitis allergic [Unknown]
  - Allergic sinusitis [Unknown]
  - Decreased immune responsiveness [Unknown]
  - Gastric polyps [Unknown]
  - Skeletal injury [Recovered/Resolved]
  - Pelvic bone injury [Recovered/Resolved]
  - Epistaxis [Recovering/Resolving]
  - Oropharyngeal discomfort [Unknown]
  - Hypersensitivity [Unknown]
  - Discomfort [Unknown]
  - Quality of life decreased [Recovered/Resolved]
  - Rectocele [Unknown]
  - Bone lesion [Not Recovered/Not Resolved]
  - Product distribution issue [Unknown]
  - Thinking abnormal [Unknown]
  - Feeling abnormal [Unknown]
  - Carbohydrate antigen 15-3 increased [Not Recovered/Not Resolved]
  - PIK3CA-activated mutation [Unknown]
  - Quality of life decreased [Unknown]
  - Feeding disorder [Unknown]
  - Sensory disturbance [Unknown]
  - Skin discolouration [Unknown]
  - COVID-19 [Unknown]
  - Bone pain [Unknown]
  - Condition aggravated [Not Recovered/Not Resolved]
  - Anosmia [Unknown]
  - Malaise [Recovered/Resolved]
  - Gene mutation [Unknown]
  - Urinary tract infection [Recovered/Resolved]
  - Oral pain [Not Recovered/Not Resolved]
  - Muscle injury [Not Recovered/Not Resolved]
  - Hepatic mass [Not Recovered/Not Resolved]
  - Dysbiosis [Not Recovered/Not Resolved]
  - Oral disorder [Unknown]
  - Speech disorder [Unknown]
  - Chills [Unknown]
  - Lip swelling [Unknown]
  - Gait disturbance [Not Recovered/Not Resolved]
  - Gastrointestinal disorder [Not Recovered/Not Resolved]
  - Pain [Not Recovered/Not Resolved]
  - Depressed mood [Unknown]
  - Myalgia [Unknown]
  - Atrophic vulvovaginitis [Unknown]
  - Nasal disorder [Unknown]
  - Head injury [Not Recovered/Not Resolved]
  - Malaise [Unknown]
  - Tumour marker abnormal [Not Recovered/Not Resolved]
  - Central nervous system lesion [Unknown]
  - Hepatic lesion [Unknown]
  - Cervix disorder [Not Recovered/Not Resolved]
  - Uterine leiomyoma [Unknown]
  - Bacteriuria [Unknown]
  - Swelling face [Unknown]
  - Pruritus [Unknown]
  - Erythema [Unknown]
  - White blood cell count decreased [Unknown]
  - Nausea [Not Recovered/Not Resolved]
  - Peripheral swelling [Unknown]
  - Vomiting [Recovered/Resolved]
  - Diarrhoea [Recovered/Resolved]
  - Nasopharyngitis [Recovered/Resolved]
  - Dizziness [Not Recovered/Not Resolved]
  - Abdominal pain upper [Recovered/Resolved]
  - Cough [Unknown]
  - Retching [Recovered/Resolved]
  - Fatigue [Unknown]
  - Sinusitis [Unknown]
  - Infection [Unknown]
  - Rhinitis [Unknown]
  - Abdominal pain [Unknown]
  - Dyspnoea [Unknown]
  - Abdominal discomfort [Unknown]
  - Drug resistance [Unknown]
  - Pain [Recovered/Resolved]
  - Pain in extremity [Recovered/Resolved]
  - Head discomfort [Recovered/Resolved]
  - Decreased appetite [Unknown]
  - Vision blurred [Unknown]
  - Illness [Unknown]
  - Weight decreased [Unknown]
  - Arthralgia [Recovered/Resolved]

NARRATIVE: CASE EVENT DATE: 20190101
